FAERS Safety Report 19473159 (Version 1)
Quarter: 2021Q2

REPORT INFORMATION
  Report Type: Spontaneous
  Country: PT (occurrence: PT)
  Receive Date: 20210629
  Receipt Date: 20210629
  Transmission Date: 20210717
  Serious: Yes (Other)
  Sender: FDA-Public Use
  Company Number: PT-009507513-2106PRT006783

PATIENT
  Sex: Female
  Weight: 115 kg

DRUGS (2)
  1. ROCURONIUM BROMIDE. [Suspect]
     Active Substance: ROCURONIUM BROMIDE
     Indication: NEUROMUSCULAR BLOCKADE
  2. BRIDION [Suspect]
     Active Substance: SUGAMMADEX

REACTIONS (3)
  - Product use issue [Unknown]
  - Spinal cord oedema [Recovered/Resolved]
  - Pharyngeal haemorrhage [Recovered/Resolved]
